FAERS Safety Report 19155000 (Version 4)
Quarter: 2021Q2

REPORT INFORMATION
  Report Type: Spontaneous
  Country: CA (occurrence: CA)
  Receive Date: 20210419
  Receipt Date: 20210614
  Transmission Date: 20210717
  Serious: Yes (Other)
  Sender: FDA-Public Use
  Company Number: CA-PFIZER INC-2020442921

PATIENT
  Age: 46 Year
  Sex: Female

DRUGS (8)
  1. RUXIENCE [Suspect]
     Active Substance: RITUXIMAB-PVVR
     Indication: MICROSCOPIC POLYANGIITIS
  2. RUXIENCE [Suspect]
     Active Substance: RITUXIMAB-PVVR
     Indication: GRANULOMATOSIS WITH POLYANGIITIS
     Dosage: 500 MG EVERY (Q) 6 MONTHS X 2 COURSES
     Route: 042
     Dates: start: 20201127, end: 20201127
  3. CALCIUM [Concomitant]
     Active Substance: CALCIUM
     Dosage: 1 DF
     Route: 065
  4. PROLIA [Concomitant]
     Active Substance: DENOSUMAB
     Dosage: 1 DF,DOSAGE INFORMATION IS UNKNOWN
     Route: 065
  5. VIT D [Concomitant]
     Active Substance: VITAMIN D NOS
     Dosage: 1 DF,DOSAGE INFORMATION IS UNKNOWN
     Route: 065
  6. CYCLOBENZAPRINE. [Concomitant]
     Active Substance: CYCLOBENZAPRINE
     Dosage: 1 DF, AS NEEDED
  7. M?ESLON [Concomitant]
     Active Substance: MORPHINE SULFATE
     Dosage: 1 DF,DOSAGE INFORMATION IS UNKNOWN
     Route: 065
  8. CRESTOR [Concomitant]
     Active Substance: ROSUVASTATIN CALCIUM
     Dosage: 1 DF,DOSAGE INFORMATION IS UNKNOWN
     Route: 065

REACTIONS (6)
  - Anaphylactic reaction [Unknown]
  - Nephrolithiasis [Unknown]
  - Nasal disorder [Unknown]
  - Condition aggravated [Unknown]
  - Urinary tract infection [Unknown]
  - Off label use [Unknown]

NARRATIVE: CASE EVENT DATE: 20201127
